FAERS Safety Report 5881114-6 (Version None)
Quarter: 2008Q3

REPORT INFORMATION
  Report Type: 
  Country: None (occurrence: None)
  Receive Date: 20080912
  Receipt Date: 20080705
  Transmission Date: 20090109
  Serious: No
  Sender: FDA-Public Use
  Company Number: US-ABBOTT-08P-163-0458703-00

PATIENT
  Sex: Male
  Weight: 72.64 kg

DRUGS (11)
  1. HUMIRA [Suspect]
     Indication: RHEUMATOID ARTHRITIS
     Route: 058
     Dates: start: 20080301
  2. DILANTIN [Concomitant]
     Indication: CONVULSION PROPHYLAXIS
     Route: 048
     Dates: start: 20080101
  3. FLUOXETINE HYDROCHLORIDE [Concomitant]
     Indication: DEPRESSION
     Route: 048
     Dates: start: 20070101
  4. GABAPENTIN [Concomitant]
     Indication: PAIN
     Route: 048
     Dates: start: 20080201
  5. GABAPENTIN [Concomitant]
     Indication: CONVULSION
  6. PROCET [Concomitant]
     Indication: RHEUMATOID ARTHRITIS
     Dosage: 5/500- 6 TABS EVERY 4-6 HOURS AS NEEDED
     Route: 048
     Dates: start: 20060101
  7. PREDNISONE TAB [Concomitant]
     Indication: RHEUMATOID ARTHRITIS
     Route: 048
     Dates: start: 20030101
  8. PREDNISONE TAB [Concomitant]
     Route: 048
  9. MELOXICAM [Concomitant]
     Indication: RHEUMATOID ARTHRITIS
     Route: 048
     Dates: start: 20080301
  10. METOPROLOL SUCCINATE [Concomitant]
     Indication: HYPERTENSION
     Route: 048
  11. VARENICLINE [Concomitant]
     Indication: SMOKING CESSATION THERAPY
     Route: 048

REACTIONS (3)
  - INJECTION SITE IRRITATION [None]
  - OSTEOPOROSIS [None]
  - SKIN WARM [None]
